FAERS Safety Report 20847710 (Version 1)
Quarter: 2022Q2

REPORT INFORMATION
  Report Type: Spontaneous
  Country: JP (occurrence: JP)
  Receive Date: 20220519
  Receipt Date: 20220519
  Transmission Date: 20220721
  Serious: Yes (Other)
  Sender: FDA-Public Use
  Company Number: JP-JNJFOC-20220531197

PATIENT
  Age: 53 Year
  Sex: Male
  Weight: 110 kg

DRUGS (8)
  1. CONCERTA [Suspect]
     Active Substance: METHYLPHENIDATE HYDROCHLORIDE
     Indication: Intellectual disability
     Route: 048
     Dates: start: 202112, end: 2022
  2. CONCERTA [Suspect]
     Active Substance: METHYLPHENIDATE HYDROCHLORIDE
     Route: 048
     Dates: start: 2022, end: 2022
  3. CONCERTA [Suspect]
     Active Substance: METHYLPHENIDATE HYDROCHLORIDE
     Dosage: WORKDAY OFF
     Route: 048
     Dates: start: 2022
  4. CONCERTA [Suspect]
     Active Substance: METHYLPHENIDATE HYDROCHLORIDE
     Dosage: IN THE MORNING,WORK DAY(TWICE WEEKLY)
     Route: 048
     Dates: start: 2022
  5. STRATTERA [Concomitant]
     Active Substance: ATOMOXETINE HYDROCHLORIDE
     Route: 048
  6. STRATTERA [Concomitant]
     Active Substance: ATOMOXETINE HYDROCHLORIDE
     Dosage: GRADUALLY INCREASEDDOSE UNKNOWN
     Route: 048
     Dates: end: 2022
  7. STRATTERA [Concomitant]
     Active Substance: ATOMOXETINE HYDROCHLORIDE
     Dosage: 24MG IN THE MORNING,48MG IN THE EVENING
     Route: 048
     Dates: start: 2022, end: 2022
  8. STRATTERA [Concomitant]
     Active Substance: ATOMOXETINE HYDROCHLORIDE
     Dosage: IN THE MORNING
     Route: 048
     Dates: start: 2022

REACTIONS (2)
  - Delirium [Unknown]
  - Abnormal sleep-related event [Unknown]
